FAERS Safety Report 9652878 (Version 1)
Quarter: 2013Q4

REPORT INFORMATION
  Report Type: Spontaneous
  Country: US (occurrence: None)
  Receive Date: 20131028
  Receipt Date: 20131028
  Transmission Date: 20140711
  Serious: Yes (Disabling)
  Sender: FDA-Public Use
  Company Number: None

PATIENT
  Age: 36 Year
  Sex: Male
  Weight: 108.86 kg

DRUGS (1)
  1. CIPRO [Suspect]
     Indication: ANTIBIOTIC PROPHYLAXIS
     Dosage: 1 PILL AS NEEDED
     Route: 048
     Dates: start: 20130712, end: 20130712

REACTIONS (12)
  - Neuropathy peripheral [None]
  - Asthenia [None]
  - Headache [None]
  - Depression [None]
  - Depersonalisation [None]
  - Amnesia [None]
  - Arthralgia [None]
  - Visual impairment [None]
  - Tinnitus [None]
  - Eye pain [None]
  - Vitreous detachment [None]
  - Vitreous floaters [None]
